FAERS Safety Report 17537865 (Version 4)
Quarter: 2021Q2

REPORT INFORMATION
  Report Type: Spontaneous
  Country: US (occurrence: US)
  Receive Date: 20200313
  Receipt Date: 20210615
  Transmission Date: 20210716
  Serious: Yes (Other)
  Sender: FDA-Public Use
  Company Number: US-PFIZER INC-2019123229

PATIENT
  Age: 55 Year
  Sex: Female

DRUGS (2)
  1. PREMARIN [Suspect]
     Active Substance: ESTROGENS, CONJUGATED
     Dosage: 0.65 MG/GM EXTERNALLY AND INTERNALLY 3 TIMES A WEEK FOR 4 WEEKS
     Route: 067
  2. PREMARIN [Suspect]
     Active Substance: ESTROGENS, CONJUGATED
     Dosage: 0.65 MG/GM VA CREAM PLACE PEA SIZE EXTERNALLY AND INTERNALLY 2 TIMES A WEEK

REACTIONS (19)
  - Suicidal ideation [Unknown]
  - Vulvovaginal burning sensation [Unknown]
  - Illness [Unknown]
  - Insomnia [Unknown]
  - Sleep apnoea syndrome [Unknown]
  - Lichen sclerosus [Unknown]
  - Depression [Not Recovered/Not Resolved]
  - Back injury [Unknown]
  - Dizziness [Unknown]
  - Post-traumatic stress disorder [Unknown]
  - Drug ineffective [Unknown]
  - Product use issue [Unknown]
  - Anxiety [Not Recovered/Not Resolved]
  - Vulval cancer [Unknown]
  - Obsessive-compulsive disorder [Unknown]
  - Vertigo [Not Recovered/Not Resolved]
  - Stress [Unknown]
  - Off label use [Unknown]
  - Intentional product misuse [Unknown]
